FAERS Safety Report 5960088-3 (Version None)
Quarter: 2008Q4

REPORT INFORMATION
  Report Type: 
  Country: None (occurrence: None)
  Receive Date: 20081120
  Receipt Date: 20081111
  Transmission Date: 20090506
  Serious: Yes (Hospitalization)
  Sender: FDA-Public Use
  Company Number: JP-ROCHE-579757

PATIENT
  Age: 51 Year
  Sex: Male

DRUGS (11)
  1. GANCICLOVIR [Suspect]
     Route: 047
     Dates: start: 20060222
  2. GANCICLOVIR [Suspect]
     Dosage: DOSAGE REDUCED AS MAINTAINANCE TREATMENT
     Route: 047
     Dates: start: 20060317, end: 20060322
  3. VALGANCICLOVIR [Suspect]
     Route: 065
     Dates: start: 20060323, end: 20060527
  4. ZITHROMAX [Suspect]
     Route: 048
     Dates: start: 20060302
  5. ZITHROMAX [Suspect]
     Route: 048
     Dates: start: 20060609
  6. EPIVIR [Suspect]
     Route: 048
     Dates: start: 20060522
  7. PENTAMIDINE [Suspect]
     Indication: DRUG USE FOR UNKNOWN INDICATION
     Route: 055
     Dates: start: 20060510
  8. ZERIT [Concomitant]
     Indication: HIV INFECTION
     Dates: start: 20060522
  9. STOCRIN [Concomitant]
     Indication: HIV INFECTION
     Dates: start: 20060522
  10. DENOSINE [Concomitant]
     Dates: start: 20060524, end: 20060712
  11. ETHAMBUTOL HCL [Concomitant]
     Dates: start: 20080609

REACTIONS (2)
  - BONE MARROW FAILURE [None]
  - MYCOBACTERIUM AVIUM COMPLEX INFECTION [None]
